FAERS Safety Report 6636330-2 (Version None)
Quarter: 2010Q1

REPORT INFORMATION
  Report Type: 
  Country: None (occurrence: None)
  Receive Date: 20100316
  Receipt Date: 20100308
  Transmission Date: 20100710
  Serious: Yes (Hospitalization, Other)
  Sender: FDA-Public Use
  Company Number: US-ROCHE-689969

PATIENT
  Age: 19 Year
  Sex: Female
  Weight: 68.5 kg

DRUGS (13)
  1. VALIUM [Suspect]
     Indication: DRUG USE FOR UNKNOWN INDICATION
     Route: 065
  2. DILANTIN [Suspect]
     Indication: DRUG USE FOR UNKNOWN INDICATION
     Dosage: DRUG:DILANTIN 125
     Route: 065
     Dates: start: 20091209, end: 20091221
  3. AMBIEN [Suspect]
     Indication: DRUG USE FOR UNKNOWN INDICATION
     Route: 065
  4. VICODIN [Suspect]
     Indication: DRUG USE FOR UNKNOWN INDICATION
     Route: 065
  5. TOPAMAX [Suspect]
     Indication: DRUG USE FOR UNKNOWN INDICATION
     Route: 065
  6. DROSPIRENONE/ESTRADIOL [Concomitant]
  7. ALBUTEROL [Concomitant]
  8. IBUPROFEN [Concomitant]
  9. TRAZODONE HCL [Concomitant]
  10. VISTARIL [Concomitant]
  11. ABILIFY [Concomitant]
  12. LEXAPRO [Concomitant]
  13. METFORMIN HCL [Concomitant]

REACTIONS (3)
  - AFFECTIVE DISORDER [None]
  - DRUG DEPENDENCE [None]
  - DRUG RASH WITH EOSINOPHILIA AND SYSTEMIC SYMPTOMS [None]
